FAERS Safety Report 23741756 (Version 1)
Quarter: 2024Q2

REPORT INFORMATION
  Report Type: Spontaneous
  Country: CN (occurrence: None)
  Receive Date: 20240415
  Receipt Date: 20240415
  Transmission Date: 20240716
  Serious: Yes (Hospitalization, Other)
  Sender: FDA-Public Use
  Company Number: CN-Unichem Pharmaceuticals (USA) Inc-UCM202404-000389

PATIENT
  Age: 64 Year
  Sex: Male

DRUGS (10)
  1. CLONIDINE HYDROCHLORIDE [Suspect]
     Active Substance: CLONIDINE HYDROCHLORIDE
     Indication: Hypertension
  2. CLONIDINE HYDROCHLORIDE [Suspect]
     Active Substance: CLONIDINE HYDROCHLORIDE
     Dosage: ON DAY 5
  3. ISONIAZID [Suspect]
     Active Substance: ISONIAZID
     Indication: Tuberculous pleurisy
     Dosage: UNKNOWN
  4. AMLODIPINE [Concomitant]
     Active Substance: AMLODIPINE BESYLATE
     Indication: Hypertension
  5. AMLODIPINE [Concomitant]
     Active Substance: AMLODIPINE BESYLATE
  6. AMLODIPINE\VALSARTAN [Concomitant]
     Active Substance: AMLODIPINE\VALSARTAN
     Indication: Hypertension
     Dosage: UNKNOWN
  7. NIFEDIPINE [Concomitant]
     Active Substance: NIFEDIPINE
     Indication: Hypertension
     Dosage: UNKNOWN
  8. RIFAMPIN [Concomitant]
     Active Substance: RIFAMPIN
     Indication: Tuberculous pleurisy
     Dosage: UNKNOWN
  9. ETHAMBUTOL [Concomitant]
     Active Substance: ETHAMBUTOL HYDROCHLORIDE
     Indication: Tuberculous pleurisy
     Dosage: UNKNOWN
  10. NITROGLYCERIN [Concomitant]
     Active Substance: NITROGLYCERIN
     Indication: Hypertension
     Dosage: UNKNOWN

REACTIONS (2)
  - Hypertension [Recovered/Resolved]
  - Drug interaction [Recovered/Resolved]
